FAERS Safety Report 7079259-0 (Version None)
Quarter: 2010Q4

REPORT INFORMATION
  Report Type: 
  Country: None (occurrence: None)
  Receive Date: 20101102
  Receipt Date: 20101021
  Transmission Date: 20110411
  Serious: Yes (Other)
  Sender: FDA-Public Use
  Company Number: US-ROCHE-737402

PATIENT
  Age: 60 Year
  Sex: Male

DRUGS (6)
  1. AVASTIN [Suspect]
     Indication: COLON CANCER STAGE IV
     Route: 042
     Dates: start: 20090801
  2. AVASTIN [Suspect]
     Route: 042
     Dates: end: 20100301
  3. AVASTIN [Suspect]
     Route: 042
     Dates: start: 20100701
  4. FLUOROURACIL [Suspect]
     Indication: COLON CANCER STAGE IV
     Route: 065
  5. IRINOTECAN HCL [Suspect]
     Indication: COLON CANCER STAGE IV
     Route: 065
  6. FOLINIC ACID [Suspect]
     Indication: COLON CANCER STAGE IV
     Route: 065

REACTIONS (1)
  - RETINAL TEAR [None]
